FAERS Safety Report 17921544 (Version 1)
Quarter: 2020Q2

REPORT INFORMATION
  Report Type: Spontaneous
  Country: US (occurrence: US)
  Receive Date: 20200622
  Receipt Date: 20200622
  Transmission Date: 20200714
  Serious: No
  Sender: FDA-Public Use
  Company Number: US-BEH-2020118528

PATIENT
  Age: 64 Year
  Sex: Female

DRUGS (5)
  1. CLARITIN [Concomitant]
     Active Substance: LORATADINE
  2. HAEGARDA [Suspect]
     Active Substance: HUMAN C1-ESTERASE INHIBITOR
     Indication: SEBORRHOEIC KERATOSIS
     Dosage: 4400 INTERNATIONAL UNIT, BIW
     Route: 058
     Dates: start: 20200430
  3. METOPROLOL. [Concomitant]
     Active Substance: METOPROLOL
  4. HAEGARDA [Suspect]
     Active Substance: HUMAN C1-ESTERASE INHIBITOR
     Indication: PROPHYLAXIS
     Dosage: UNK
     Route: 058
  5. HAEGARDA [Suspect]
     Active Substance: HUMAN C1-ESTERASE INHIBITOR
     Dosage: UNK
     Route: 058

REACTIONS (4)
  - Injection site pruritus [Not Recovered/Not Resolved]
  - No adverse event [Unknown]
  - Injection site swelling [Not Recovered/Not Resolved]
  - Product use in unapproved indication [Unknown]
